FAERS Safety Report 4541839-1 (Version None)
Quarter: 2004Q4

REPORT INFORMATION
  Report Type: 
  Country: None (occurrence: None)
  Receive Date: 20041230
  Receipt Date: 20041218
  Transmission Date: 20050328
  Serious: Yes (Hospitalization)
  Sender: FDA-Public Use
  Company Number: PHBS2004MY17081

PATIENT
  Age: 24 Year
  Sex: Female
  Weight: 62 kg

DRUGS (1)
  1. OXYTOCIN [Suspect]
     Indication: LABOUR INDUCTION
     Dosage: 1 ML, UNK
     Route: 030
     Dates: start: 20041214

REACTIONS (2)
  - DRUG INEFFECTIVE [None]
  - HAEMOGLOBIN DECREASED [None]
